FAERS Safety Report 5661213-4 (Version None)
Quarter: 2008Q1

REPORT INFORMATION
  Report Type: 
  Country: None (occurrence: None)
  Receive Date: 20080312
  Receipt Date: 20080220
  Transmission Date: 20080703
  Serious: Yes (Hospitalization, Congenital Anomaly)
  Sender: FDA-Public Use
  Company Number: A0677481A

PATIENT
  Sex: Female

DRUGS (2)
  1. PAXIL [Suspect]
     Indication: ANXIETY
     Dosage: 20MG PER DAY
     Dates: start: 19990101, end: 20031201
  2. VITAMIN AND MINERAL PRENATAL SUPPLEMENT W/ FOLIC ACID CAP [Concomitant]
     Indication: PREGNANCY
     Dates: start: 19991101, end: 20020101

REACTIONS (11)
  - BICUSPID AORTIC VALVE [None]
  - BUNDLE BRANCH BLOCK RIGHT [None]
  - CARDIAC MURMUR [None]
  - COARCTATION OF THE AORTA [None]
  - DRUG EXPOSURE DURING PREGNANCY [None]
  - HYPERTENSION [None]
  - LEFT VENTRICULAR HYPERTROPHY [None]
  - METABOLIC ACIDOSIS [None]
  - PATENT DUCTUS ARTERIOSUS [None]
  - RESPIRATORY FAILURE [None]
  - SUBCLAVIAN ARTERY STENOSIS [None]
